FAERS Safety Report 7588344-6 (Version None)
Quarter: 2011Q3

REPORT INFORMATION
  Report Type: 
  Country: None (occurrence: None)
  Receive Date: 20110705
  Receipt Date: 20110624
  Transmission Date: 20111222
  Serious: Yes (Hospitalization)
  Sender: FDA-Public Use
  Company Number: CN-US-EMD SERONO, INC.-7066920

PATIENT
  Sex: Female
  Weight: 57 kg

DRUGS (2)
  1. GONAL-F [Suspect]
     Indication: PRODUCT USED FOR UNKNOWN INDICATION
     Route: 058
     Dates: start: 20101022, end: 20101103
  2. LUVERIS [Suspect]
     Indication: OVULATION INDUCTION
     Route: 030
     Dates: start: 20101101, end: 20101103

REACTIONS (1)
  - ABORTION SPONTANEOUS [None]
